FAERS Safety Report 14724301 (Version 2)
Quarter: 2018Q2

REPORT INFORMATION
  Report Type: Spontaneous
  Country: US (occurrence: US)
  Receive Date: 20180405
  Receipt Date: 20180416
  Transmission Date: 20180711
  Serious: Yes (Hospitalization)
  Sender: FDA-Public Use
  Company Number: US-TEVA-2018-US-877710

PATIENT
  Age: 48 Year
  Sex: Male

DRUGS (1)
  1. CABERGOLINE. [Suspect]
     Active Substance: CABERGOLINE
     Indication: PITUITARY TUMOUR BENIGN
     Route: 065

REACTIONS (3)
  - Empty sella syndrome [Recovered/Resolved]
  - Blindness [Recovered/Resolved]
  - Visual pathway disorder [Recovered/Resolved]
